FAERS Safety Report 5820658-X (Version None)
Quarter: 2008Q3

REPORT INFORMATION
  Report Type: 
  Country: None (occurrence: None)
  Receive Date: 20080724
  Receipt Date: 20080102
  Transmission Date: 20090109
  Serious: No
  Sender: FDA-Public Use
  Company Number: A0701690A

PATIENT
  Sex: Male

DRUGS (3)
  1. AVANDIA [Suspect]
     Indication: DRUG USE FOR UNKNOWN INDICATION
     Route: 048
  2. METFORMIN [Suspect]
     Dosage: 1000MG TWICE PER DAY
  3. GLUBICIDE [Suspect]

REACTIONS (1)
  - ABDOMINAL PAIN UPPER [None]
